FAERS Safety Report 8337289 (Version 8)
Quarter: 2012Q4

REPORT INFORMATION
  Report Type: 
  Country: US (occurrence: US)
  Receive Date: 20120113
  Receipt Date: 20121116
  Transmission Date: 20130627
  Serious: Yes (Other)
  Sender: FDA-Public Use
  Company Number: US-ASTRAZENECA-2011SE62707

PATIENT
  Age: 85 Year
  Sex: Female

DRUGS (4)
  1. NEXIUM [Suspect]
     Indication: GASTROOESOPHAGEAL REFLUX DISEASE
     Route: 048
  2. PRILOSEC [Suspect]
     Route: 048
  3. CRESTOR [Suspect]
     Route: 048
  4. CRESTOR [Suspect]
     Route: 048

REACTIONS (11)
  - Deafness [Unknown]
  - Injury [Unknown]
  - Hearing impaired [Unknown]
  - Pain [Unknown]
  - Speech disorder [Unknown]
  - Insomnia [Unknown]
  - Diabetes mellitus [Unknown]
  - Mental impairment [Unknown]
  - Circumstance or information capable of leading to medication error [Unknown]
  - Intentional drug misuse [Unknown]
  - Intentional drug misuse [Unknown]
